FAERS Safety Report 6545131-5 (Version None)
Quarter: 2010Q1

REPORT INFORMATION
  Report Type: 
  Country: None (occurrence: None)
  Receive Date: 20100121
  Receipt Date: 20100112
  Transmission Date: 20100710
  Serious: Yes (Other)
  Sender: FDA-Public Use
  Company Number: FR-SANOFI-AVENTIS-2010SA002031

PATIENT
  Age: 71 Year
  Sex: Male

DRUGS (3)
  1. LEUPRORELIN ACETATE [Suspect]
     Route: 058
     Dates: start: 20081003
  2. BICALUTAMIDE [Concomitant]
     Route: 048
  3. TAMOXIFEN CITRATE [Concomitant]
     Route: 048
     Dates: start: 20090601

REACTIONS (2)
  - PROSTATE CANCER [None]
  - PROSTATIC SPECIFIC ANTIGEN INCREASED [None]
